FAERS Safety Report 14561471 (Version 1)
Quarter: 2018Q1

REPORT INFORMATION
  Report Type: Spontaneous
  Country: US (occurrence: US)
  Receive Date: 20180222
  Receipt Date: 20180222
  Transmission Date: 20180509
  Serious: No
  Sender: FDA-Public Use
  Company Number: US-PFIZER INC-2018072231

PATIENT
  Age: 9 Year
  Sex: Female
  Weight: 34.4 kg

DRUGS (2)
  1. GENOTROPIN [Suspect]
     Active Substance: SOMATROPIN
     Indication: TURNER^S SYNDROME
     Dosage: 1.5 MG, DAILY (6 DAYS/WK)
  2. GENOTROPIN [Suspect]
     Active Substance: SOMATROPIN
     Dosage: 1.6 MG, DAILY (6 DAYS/WK) (0.30MG/KG/WEEK)

REACTIONS (2)
  - Intentional dose omission [Unknown]
  - Anxiety [Unknown]
